FAERS Safety Report 6657055-3 (Version None)
Quarter: 2010Q1

REPORT INFORMATION
  Report Type: 
  Country: None (occurrence: None)
  Receive Date: 20100330
  Receipt Date: 20091218
  Transmission Date: 20100710
  Serious: Yes (Hospitalization)
  Sender: FDA-Public Use
  Company Number: US-JNJFOC-20090501446

PATIENT
  Age: 53 Year
  Sex: Female
  Weight: 36.29 kg

DRUGS (4)
  1. LEVAQUIN [Suspect]
     Indication: PNEUMONIA
     Route: 048
  2. LEVAQUIN [Suspect]
     Route: 048
  3. CLINDAMYCIN [Concomitant]
     Indication: PNEUMONIA
     Route: 048
  4. METFORMIN HYDROCHLORIDE [Concomitant]
     Indication: BLOOD GLUCOSE ABNORMAL
     Route: 048

REACTIONS (4)
  - GASTRIC ULCER [None]
  - HYPOAESTHESIA [None]
  - ORAL CANDIDIASIS [None]
  - WEIGHT DECREASED [None]
